FAERS Safety Report 18574349 (Version 1)
Quarter: 2020Q4

REPORT INFORMATION
  Report Type: Spontaneous
  Country: US (occurrence: US)
  Receive Date: 20201203
  Receipt Date: 20201203
  Transmission Date: 20210114
  Serious: No
  Sender: FDA-Public Use
  Company Number: US-AMNEAL PHARMACEUTICALS-2019-AMRX-03249

PATIENT
  Sex: Male
  Weight: 72 kg

DRUGS (4)
  1. RANITIDINE. [Suspect]
     Active Substance: RANITIDINE
     Indication: GASTROOESOPHAGEAL REFLUX DISEASE
     Dosage: 1 TABLETS, 2 /DAY
     Route: 048
     Dates: start: 2019, end: 201911
  2. MECLIZINE [Concomitant]
     Active Substance: MECLIZINE HYDROCHLORIDE
     Indication: VERTIGO
     Dosage: 25 MILLIGRAM, QD
     Route: 065
  3. LISINOPRIL. [Concomitant]
     Active Substance: LISINOPRIL
     Indication: BLOOD PRESSURE ABNORMAL
     Dosage: 10 MILLIGRAM, QD
     Route: 065
  4. LEVOTHYROXINE. [Concomitant]
     Active Substance: LEVOTHYROXINE
     Indication: THYROID DISORDER
     Dosage: 100 MILLIGRAM, QD
     Route: 065

REACTIONS (6)
  - Weight increased [Not Recovered/Not Resolved]
  - Acne [Unknown]
  - Dizziness [Recovering/Resolving]
  - Sensation of foreign body [Not Recovered/Not Resolved]
  - Fluid retention [Not Recovered/Not Resolved]
  - Headache [Recovering/Resolving]

NARRATIVE: CASE EVENT DATE: 2019
